FAERS Safety Report 14895620 (Version 2)
Quarter: 2018Q2

REPORT INFORMATION
  Report Type: Spontaneous
  Country: US (occurrence: US)
  Receive Date: 20180515
  Receipt Date: 20180530
  Transmission Date: 20180711
  Serious: No
  Sender: FDA-Public Use
  Company Number: US-BAYER-2018-090607

PATIENT
  Age: 54 Year
  Sex: Female
  Weight: 260 kg

DRUGS (17)
  1. MIRALAX [Suspect]
     Active Substance: POLYETHYLENE GLYCOL 3350
     Dosage: UNK
     Route: 048
     Dates: start: 201505
  2. OMEPRAZOLE. [Concomitant]
     Active Substance: OMEPRAZOLE
     Dosage: UNK
  3. AFINITOR [Concomitant]
     Active Substance: EVEROLIMUS
     Dosage: UNK
  4. BIOTIN [Concomitant]
     Active Substance: BIOTIN
     Dosage: UNK
  5. LOSARTAN. [Concomitant]
     Active Substance: LOSARTAN
     Dosage: UNK
  6. OXYTOCIN. [Concomitant]
     Active Substance: OXYTOCIN
     Indication: PAIN
     Dosage: UNK
  7. CALCIUM [Concomitant]
     Active Substance: CALCIUM
     Dosage: UNK
  8. GABAPENTIN. [Concomitant]
     Active Substance: GABAPENTIN
     Dosage: UNK
  9. TEMAZEPAM. [Concomitant]
     Active Substance: TEMAZEPAM
     Dosage: UNK
  10. SENNA [Concomitant]
     Active Substance: SENNA LEAF\SENNOSIDES\SENNOSIDES A AND B
     Indication: GASTROINTESTINAL DISORDER
     Dosage: UNK
  11. AROMASIN [Suspect]
     Active Substance: EXEMESTANE
     Dosage: UNK
  12. CLONIDINE. [Concomitant]
     Active Substance: CLONIDINE
     Dosage: UNK
  13. FAMOTIDINE. [Concomitant]
     Active Substance: FAMOTIDINE
     Dosage: UNK
  14. EFFEXOR [Concomitant]
     Active Substance: VENLAFAXINE HYDROCHLORIDE
     Dosage: UNK
  15. SIMETHICONE (DIMETHICONE) [Concomitant]
     Active Substance: DIMETHICONE
     Dosage: UNK
  16. VITAMIN C [Concomitant]
     Active Substance: ASCORBIC ACID
     Dosage: UNK
  17. HYDROCHLOROTHIAZIDE. [Concomitant]
     Active Substance: HYDROCHLOROTHIAZIDE
     Dosage: UNK

REACTIONS (3)
  - Product use issue [Unknown]
  - Product prescribing issue [Unknown]
  - Drug effect incomplete [Unknown]

NARRATIVE: CASE EVENT DATE: 201505
